FAERS Safety Report 5719459-2 (Version None)
Quarter: 2008Q2

REPORT INFORMATION
  Report Type: 
  Country: None (occurrence: None)
  Receive Date: 20080428
  Receipt Date: 20080415
  Transmission Date: 20081010
  Serious: Yes (Hospitalization)
  Sender: FDA-Public Use
  Company Number: US-AMGEN-STX270026

PATIENT
  Sex: Female
  Weight: 91.3 kg

DRUGS (5)
  1. ENBREL [Suspect]
     Indication: RHEUMATOID ARTHRITIS
     Route: 058
     Dates: start: 20080227, end: 20080305
  2. METHOTREXATE [Concomitant]
     Route: 058
     Dates: start: 20050902
  3. FOLIC ACID [Concomitant]
     Route: 065
     Dates: start: 20050902
  4. GABAPENTIN [Concomitant]
     Route: 048
     Dates: start: 20050817
  5. TRAZODONE HCL [Concomitant]
     Route: 065
     Dates: start: 20070302

REACTIONS (1)
  - THROMBOANGIITIS OBLITERANS [None]
